FAERS Safety Report 5418061-X (Version None)
Quarter: 2007Q3

REPORT INFORMATION
  Report Type: 
  Country: None (occurrence: None)
  Receive Date: 20070817
  Receipt Date: 20070806
  Transmission Date: 20080115
  Serious: Yes (Life-Threatening, Disabling)
  Sender: FDA-Public Use
  Company Number: GB-AMGEN-UK238616

PATIENT
  Age: 53 Year
  Sex: Female
  Weight: 113 kg

DRUGS (20)
  1. CINACALCET [Suspect]
     Indication: HYPERPARATHYROIDISM SECONDARY
     Route: 048
     Dates: start: 20070424, end: 20070717
  2. ALFACALCIDOL [Concomitant]
     Route: 048
     Dates: start: 20070713
  3. AQUEOUS CREAM [Concomitant]
     Route: 061
     Dates: start: 20060517
  4. BECLOMETHASONE DIPROPIONATE [Concomitant]
     Dates: start: 20050117
  5. CALCICHEW [Concomitant]
     Route: 048
     Dates: start: 20070618
  6. CODEINE PHOSPHATE AND ACETAMINOPHEN [Concomitant]
     Route: 048
     Dates: start: 20030509
  7. FOLIC ACID [Concomitant]
     Route: 048
     Dates: start: 20050811
  8. OMEPRAZOLE [Concomitant]
     Route: 048
  9. PAROXETINE [Concomitant]
     Route: 048
     Dates: start: 20010101
  10. RAMIPRIL [Concomitant]
     Route: 048
     Dates: start: 20060525
  11. RENAGEL [Concomitant]
     Route: 048
     Dates: start: 20070426
  12. SALBUTAMOL [Concomitant]
     Dates: start: 20060117
  13. WARFARIN [Concomitant]
     Dates: start: 20050812
  14. ZOPICLONE [Concomitant]
     Route: 048
     Dates: start: 20060515
  15. ARANESP [Concomitant]
     Route: 042
     Dates: start: 20061018
  16. GLYCERYL TRINITRATE [Concomitant]
  17. HYDROXOCOBALAMIN [Concomitant]
     Route: 030
     Dates: start: 20060424
  18. HYDROXYZINE [Concomitant]
     Route: 048
     Dates: start: 20060905
  19. HYPROMELLOSE [Concomitant]
     Route: 061
  20. OROVITE [Concomitant]
     Dates: start: 20010101

REACTIONS (3)
  - CONVULSION [None]
  - HYPOCALCAEMIA [None]
  - JOINT INJURY [None]
